FAERS Safety Report 12858265 (Version 1)
Quarter: 2016Q4

REPORT INFORMATION
  Report Type: Not Available
  Country: None (occurrence: US)
  Receive Date: 20161018
  Receipt Date: 20161018
  Transmission Date: 20170207
  Serious: No
  Sender: FDA-Public Use
  Company Number: US-AKORN-17235

PATIENT
  Sex: Female

DRUGS (1)
  1. PROMETHAZINE HCL + CODEINE PHOSPHATE SYRUP [Suspect]
     Active Substance: CODEINE PHOSPHATE\PROMETHAZINE HYDROCHLORIDE

REACTIONS (6)
  - Blister [Recovered/Resolved]
  - Malaise [Unknown]
  - Eye pruritus [Recovered/Resolved]
  - Eye swelling [Recovered/Resolved]
  - Ocular hyperaemia [Recovered/Resolved]
  - Eyelid disorder [Not Recovered/Not Resolved]
